FAERS Safety Report 7749716-X (Version None)
Quarter: 2011Q3

REPORT INFORMATION
  Report Type: 
  Country: None (occurrence: None)
  Receive Date: 20110914
  Receipt Date: 20110907
  Transmission Date: 20111222
  Serious: Yes (Other)
  Sender: FDA-Public Use
  Company Number: US-BRACCO-004885

PATIENT
  Sex: Male
  Weight: 82 kg

DRUGS (51)
  1. CONTRAST MEDIA [Suspect]
     Dates: start: 20050315
  2. LOPRESSOR [Concomitant]
  3. METOPROLOL [Concomitant]
  4. PROHANCE [Suspect]
     Indication: NUCLEAR MAGNETIC RESONANCE IMAGING BRAIN
     Dates: start: 20030508, end: 20030508
  5. MAGNEVIST [Suspect]
     Indication: NUCLEAR MAGNETIC RESONANCE IMAGING ABDOMINAL
     Dates: start: 20050304, end: 20050304
  6. MAGNEVIST [Suspect]
     Indication: NUCLEAR MAGNETIC RESONANCE IMAGING
     Dates: start: 20040504, end: 20040504
  7. NOVOLOG [Concomitant]
     Dosage: DOSE: 70/30
  8. ASPIRIN [Concomitant]
  9. RENAGEL [Concomitant]
  10. INDERAL [Concomitant]
  11. OMNISCAN [Suspect]
     Indication: NUCLEAR MAGNETIC RESONANCE IMAGING
     Dates: start: 20030402, end: 20110402
  12. FLOMAX [Concomitant]
  13. CONTRAST MEDIA [Suspect]
     Indication: CORONARY ARTERY DISEASE
     Dates: start: 20031010
  14. CONTRAST MEDIA [Suspect]
     Indication: RENAL ARTERY STENOSIS
     Dates: start: 20010904
  15. PROHANCE [Suspect]
     Indication: ANGIOGRAM
     Dates: start: 20031116, end: 20031116
  16. LIPITOR [Concomitant]
  17. AVAPRO [Concomitant]
  18. CONTRAST MEDIA [Suspect]
     Indication: RENAL FAILURE CHRONIC
     Dates: start: 20001026
  19. PLAVIX [Concomitant]
  20. GABAPENTIN [Concomitant]
  21. IMDUR [Concomitant]
  22. COREG [Concomitant]
  23. DIOVAN [Concomitant]
  24. PREDNISONE [Concomitant]
  25. CONTRAST MEDIA [Suspect]
     Indication: CARDIAC FAILURE CONGESTIVE
     Dates: start: 19901213
  26. CONTRAST MEDIA [Suspect]
     Indication: NUCLEAR MAGNETIC RESONANCE IMAGING
     Dates: start: 20030402
  27. MAGNEVIST [Suspect]
     Indication: ANGIOPLASTY
     Dates: start: 20050315, end: 20050315
  28. MAGNEVIST [Suspect]
     Indication: INVESTIGATION
     Dates: start: 20050304, end: 20050304
  29. JANUVIA [Concomitant]
  30. DILTIAZEM [Concomitant]
  31. CONTRAST MEDIA [Suspect]
     Indication: ANGIOGRAM
     Dates: start: 20050304, end: 20050304
  32. CONTRAST MEDIA [Suspect]
     Dates: start: 20040504
  33. ARANESP [Concomitant]
  34. FERROUS SULFATE TAB [Concomitant]
  35. PIOGLITAZONE [Concomitant]
  36. ALLOPURINOL [Concomitant]
  37. AMBIEN [Concomitant]
  38. CONTRAST MEDIA [Suspect]
     Dates: start: 20031116
  39. PROGRAF [Concomitant]
  40. NEPHROVITE [Concomitant]
  41. COZAAR [Concomitant]
  42. ASPIRIN [Concomitant]
  43. DEMADEX [Concomitant]
  44. VISIPAQUE [Suspect]
     Indication: ANGIOPLASTY
     Dates: start: 20050315
  45. CONTRAST MEDIA [Suspect]
     Dates: start: 20050304, end: 20050304
  46. MYCOPHENOLATE MOFETIL (CELLCEPT) [Concomitant]
  47. RANEXA [Concomitant]
  48. NEURONTIN [Concomitant]
  49. OMNISCAN [Suspect]
     Indication: ANGIOGRAM
     Dates: start: 20040504, end: 20040504
  50. LASIX [Concomitant]
  51. STARLIX [Concomitant]

REACTIONS (1)
  - NEPHROGENIC SYSTEMIC FIBROSIS [None]
